FAERS Safety Report 20290613 (Version 1)
Quarter: 2022Q1

REPORT INFORMATION
  Report Type: Spontaneous
  Country: CA (occurrence: CA)
  Receive Date: 20220104
  Receipt Date: 20220104
  Transmission Date: 20220424
  Serious: Yes (Life-Threatening, Hospitalization)
  Sender: FDA-Public Use
  Company Number: None

PATIENT
  Age: 56 Year
  Sex: Female
  Weight: 79 kg

DRUGS (1)
  1. CAPECITABINE [Suspect]
     Active Substance: CAPECITABINE
     Indication: Breast cancer metastatic
     Route: 048

REACTIONS (7)
  - Dysphagia [Unknown]
  - Gastrointestinal inflammation [Unknown]
  - Haemoglobin abnormal [Unknown]
  - Nausea [Unknown]
  - Pancytopenia [Unknown]
  - Pneumonia [Unknown]
  - Rash [Unknown]
